FAERS Safety Report 7564273-9 (Version None)
Quarter: 2011Q2

REPORT INFORMATION
  Report Type: 
  Country: None (occurrence: None)
  Receive Date: 20110622
  Receipt Date: 20110609
  Transmission Date: 20111010
  Serious: Yes (Death)
  Sender: FDA-Public Use
  Company Number: PHHY2009FR20877

PATIENT
  Sex: Male
  Weight: 73 kg

DRUGS (3)
  1. PREVISCAN [Concomitant]
     Indication: CARDIAC VALVE PROSTHESIS USER
     Dosage: 1 DF, QD
     Dates: start: 19980101
  2. EXJADE [Suspect]
     Indication: IRON OVERLOAD
     Dosage: 1000 MG / DAY
     Route: 048
     Dates: start: 20051201
  3. ADANCOR [Concomitant]
     Indication: HYPERTENSION
     Dosage: 20 MG / DAY
     Dates: start: 20090101

REACTIONS (4)
  - ERYSIPELAS [None]
  - GENERAL PHYSICAL HEALTH DETERIORATION [None]
  - CARDIAC FAILURE [None]
  - SEPSIS [None]
